FAERS Safety Report 6443332-8 (Version None)
Quarter: 2009Q4

REPORT INFORMATION
  Report Type: 
  Country: None (occurrence: None)
  Receive Date: 20091112
  Receipt Date: 20091029
  Transmission Date: 20100525
  Serious: Yes (Life-Threatening, Hospitalization)
  Sender: FDA-Public Use
  Company Number: AMAG200900041

PATIENT
  Age: 51 Year
  Sex: Female

DRUGS (2)
  1. FERAHEME [Suspect]
     Indication: IRON DEFICIENCY ANAEMIA
     Dosage: 510 MG, SINGLE, INTRAVENOUS
     Route: 042
     Dates: start: 20091028, end: 20091028
  2. ZOSYN [Concomitant]

REACTIONS (6)
  - ANAPHYLACTIC REACTION [None]
  - ANGIOEDEMA [None]
  - BLOOD CREATININE INCREASED [None]
  - BRONCHOSPASM [None]
  - CARDIAC ARREST [None]
  - SERUM FERRITIN INCREASED [None]
